FAERS Safety Report 23367473 (Version 1)
Quarter: 2024Q1

REPORT INFORMATION
  Report Type: Spontaneous
  Country: US (occurrence: US)
  Receive Date: 20240104
  Receipt Date: 20240104
  Transmission Date: 20240410
  Serious: No
  Sender: FDA-Public Use
  Company Number: US-009507513-2401USA000644

PATIENT
  Sex: Male
  Weight: 126.98 kg

DRUGS (3)
  1. WELIREG [Suspect]
     Active Substance: BELZUTIFAN
     Indication: Product used for unknown indication
     Dosage: REGIMEN #1
     Route: 048
  2. WELIREG [Suspect]
     Active Substance: BELZUTIFAN
     Dosage: REGIMEN #2
     Route: 048
  3. CABOMETYX [Suspect]
     Active Substance: CABOZANTINIB S-MALATE
     Indication: Product used for unknown indication
     Route: 065

REACTIONS (6)
  - Hypoaesthesia [Unknown]
  - Rash [Unknown]
  - Ageusia [Unknown]
  - Laboratory test abnormal [Unknown]
  - Product use issue [Unknown]
  - Product dose omission issue [Unknown]
